FAERS Safety Report 5320944-6 (Version None)
Quarter: 2007Q2

REPORT INFORMATION
  Report Type: 
  Country: None (occurrence: None)
  Receive Date: 20070509
  Receipt Date: 20070509
  Transmission Date: 20071010
  Serious: Yes (Hospitalization, Other)
  Sender: FDA-Public Use
  Company Number: DE-ABBOTT-06P-062-0344193-00

PATIENT
  Age: 41 Year
  Sex: Female

DRUGS (10)
  1. ERYTHROMYCIN BASE [Suspect]
     Indication: PNEUMONIA
  2. ERYTHROMYCIN BASE [Interacting]
  3. CARBAMAZEPINE [Interacting]
     Indication: DRUG USE FOR UNKNOWN INDICATION
  4. CARBAMAZEPINE [Interacting]
  5. CARBAMAZEPINE [Interacting]
  6. METRONIDAZOLE [Interacting]
     Indication: DRUG USE FOR UNKNOWN INDICATION
  7. LEVOMETHADONE [Concomitant]
     Indication: DRUG USE FOR UNKNOWN INDICATION
  8. DIAZEPAM [Concomitant]
     Indication: DRUG USE FOR UNKNOWN INDICATION
  9. DIAZEPAM [Concomitant]
     Dosage: SUCCESSIVELY REDUCED
  10. GABAPENTIN [Concomitant]
     Indication: DRUG USE FOR UNKNOWN INDICATION

REACTIONS (2)
  - DRUG INTERACTION [None]
  - DRUG TOXICITY [None]
